FAERS Safety Report 21317804 (Version 1)
Quarter: 2022Q3

REPORT INFORMATION
  Report Type: Spontaneous
  Country: US (occurrence: US)
  Receive Date: 20220911
  Receipt Date: 20220911
  Transmission Date: 20221026
  Serious: No
  Sender: FDA-Public Use
  Company Number: US-SA-SAC20220824000564

PATIENT
  Sex: Male

DRUGS (1)
  1. DUPILUMAB [Suspect]
     Active Substance: DUPILUMAB
     Indication: Dermatitis atopic
     Route: 058

REACTIONS (4)
  - Nausea [Unknown]
  - Pyrexia [Unknown]
  - Fatigue [Unknown]
  - Injection site urticaria [Unknown]
